FAERS Safety Report 8681643 (Version 3)
Quarter: 2013Q4

REPORT INFORMATION
  Report Type: Spontaneous
  Country: US (occurrence: US)
  Receive Date: 20120725
  Receipt Date: 20131101
  Transmission Date: 20140711
  Serious: No
  Sender: FDA-Public Use
  Company Number: US-009507513-2012SP033077

PATIENT
  Age: 52 Year
  Sex: Male

DRUGS (3)
  1. CLARINEX [Suspect]
     Indication: NASAL CONGESTION
     Dosage: 2.5/ 120 MG, Q12H
     Route: 048
     Dates: start: 20120425
  2. GLUCOPHAGE [Concomitant]
  3. KLONOPIN [Concomitant]
     Indication: NASAL CONGESTION
     Dosage: UNK

REACTIONS (3)
  - Nasal congestion [Recovered/Resolved]
  - Dyspnoea [Recovered/Resolved]
  - Drug ineffective [Unknown]
